FAERS Safety Report 7444386-2 (Version None)
Quarter: 2011Q2

REPORT INFORMATION
  Report Type: 
  Country: None (occurrence: None)
  Receive Date: 20110427
  Receipt Date: 20110427
  Transmission Date: 20111010
  Serious: Yes (Hospitalization)
  Sender: FDA-Public Use
  Company Number: None

PATIENT
  Age: 27 Year
  Sex: Male
  Weight: 78.4723 kg

DRUGS (1)
  1. NAFCILLIN [Suspect]
     Indication: CENTRAL NERVOUS SYSTEM ABSCESS
     Dosage: 3GM Q6H IV
     Route: 042
     Dates: start: 20110304, end: 20110329

REACTIONS (1)
  - RASH [None]
